FAERS Safety Report 25423762 (Version 1)
Quarter: 2025Q2

REPORT INFORMATION
  Report Type: Report from Study
  Country: TW (occurrence: TW)
  Receive Date: 20250611
  Receipt Date: 20250611
  Transmission Date: 20250716
  Serious: Yes (Other)
  Sender: ABBVIE
  Company Number: TW-ABBVIE-6314916

PATIENT
  Age: 63 Year
  Sex: Female
  Weight: 65 kg

DRUGS (1)
  1. RINVOQ [Suspect]
     Active Substance: UPADACITINIB
     Indication: Rheumatoid arthritis
     Route: 048
     Dates: start: 20250408, end: 20250604

REACTIONS (2)
  - Invasive ductal breast carcinoma [Unknown]
  - Breast cancer female [Unknown]

NARRATIVE: CASE EVENT DATE: 20250512
